FAERS Safety Report 10755844 (Version 1)
Quarter: 2015Q1

REPORT INFORMATION
  Report Type: Spontaneous
  Country: US (occurrence: None)
  Receive Date: 20150123
  Receipt Date: 20150123
  Transmission Date: 20150721
  Serious: No
  Sender: FDA-Public Use
  Company Number: 2014TUS007718

PATIENT
  Age: 21 Year
  Sex: Male
  Weight: 53.5 kg

DRUGS (3)
  1. IMURAN /00001501/ (AZATHIOPRINE) [Concomitant]
  2. PENTASA [Concomitant]
     Active Substance: MESALAMINE
  3. ENTYVIO [Suspect]
     Active Substance: VEDOLIZUMAB
     Indication: COLITIS ULCERATIVE
     Dosage: FIRST DOSE
     Route: 042
     Dates: start: 201407, end: 201407

REACTIONS (2)
  - Fatigue [None]
  - Pain [None]

NARRATIVE: CASE EVENT DATE: 2014
